FAERS Safety Report 6515311-3 (Version None)
Quarter: 2009Q4

REPORT INFORMATION
  Report Type: 
  Country: None (occurrence: None)
  Receive Date: 20091223
  Receipt Date: 20091210
  Transmission Date: 20100525
  Serious: No
  Sender: FDA-Public Use
  Company Number: BR-ROCHE-658137

PATIENT
  Sex: Female
  Weight: 2.9 kg

DRUGS (4)
  1. TAMIFLU [Suspect]
     Indication: H1N1 INFLUENZA
     Route: 064
     Dates: start: 20090921
  2. COMBIRON [Concomitant]
     Dosage: DRUG: COMBIRON FOLICO
  3. AMOXICILLIN [Concomitant]
     Indication: H1N1 INFLUENZA
     Dates: start: 20090920
  4. SORINE [Concomitant]
     Dates: start: 20090917

REACTIONS (2)
  - NO ADVERSE EVENT [None]
  - NORMAL NEWBORN [None]
